FAERS Safety Report 20544224 (Version 1)
Quarter: 2022Q1

REPORT INFORMATION
  Report Type: Other
  Country: US (occurrence: None)
  Receive Date: 20220303
  Receipt Date: 20220303
  Transmission Date: 20220423
  Serious: Yes (Other)
  Sender: FDA-Public Use
  Company Number: US-ROCHE-3033464

PATIENT
  Age: 51 Year
  Sex: Male
  Weight: 118.04 kg

DRUGS (4)
  1. OCREVUS [Suspect]
     Active Substance: OCRELIZUMAB
     Indication: Relapsing-remitting multiple sclerosis
     Dosage: DATE OF TREATMENT : 15/SEPT/2021
     Route: 042
     Dates: start: 20200901
  2. OCREVUS [Suspect]
     Active Substance: OCRELIZUMAB
     Route: 042
  3. DIROXIMEL FUMARATE [Concomitant]
     Active Substance: DIROXIMEL FUMARATE
  4. VUMERITY [Concomitant]
     Active Substance: DIROXIMEL FUMARATE

REACTIONS (2)
  - Impaired driving ability [Unknown]
  - Multiple sclerosis relapse [Recovered/Resolved]

NARRATIVE: CASE EVENT DATE: 20210301
